FAERS Safety Report 8275729-8 (Version None)
Quarter: 2012Q2

REPORT INFORMATION
  Report Type: 
  Country: None (occurrence: None)
  Receive Date: 20120412
  Receipt Date: 20120329
  Transmission Date: 20120825
  Serious: Yes (Other)
  Sender: FDA-Public Use
  Company Number: SE-UCBSA-054167

PATIENT
  Age: 38 Year
  Sex: Male
  Weight: 84 kg

DRUGS (2)
  1. VIMPAT [Suspect]
     Indication: EPILEPSY
     Route: 048
     Dates: start: 20120314, end: 20120317
  2. ERGENYL RET [Concomitant]
     Indication: EPILEPSY
     Route: 048
     Dates: start: 19940101

REACTIONS (1)
  - COLITIS [None]
